FAERS Safety Report 24529989 (Version 2)
Quarter: 2024Q4

REPORT INFORMATION
  Report Type: Spontaneous
  Country: SE (occurrence: SE)
  Receive Date: 20241021
  Receipt Date: 20241022
  Transmission Date: 20250115
  Serious: Yes (Death, Hospitalization)
  Sender: LUNDBECK
  Company Number: SE-LUNDBECK-DKLU4005784

PATIENT

DRUGS (1)
  1. VYEPTI [Suspect]
     Active Substance: EPTINEZUMAB-JJMR
     Indication: Migraine
     Dosage: 100 MILLIGRAM
     Route: 041
     Dates: start: 20240517, end: 20240725

REACTIONS (3)
  - COVID-19 pneumonia [Fatal]
  - Oxygen saturation decreased [Fatal]
  - Pulmonary embolism [Fatal]
